FAERS Safety Report 13608789 (Version 1)
Quarter: 2017Q2

REPORT INFORMATION
  Report Type: Spontaneous
  Country: NL (occurrence: NL)
  Receive Date: 20170602
  Receipt Date: 20170602
  Transmission Date: 20170830
  Serious: Yes (Hospitalization, Other)
  Sender: FDA-Public Use
  Company Number: NL-MYLANLABS-2017M1033418

PATIENT

DRUGS (1)
  1. AZATHIOPRINE. [Suspect]
     Active Substance: AZATHIOPRINE
     Indication: PANCREATITIS CHRONIC
     Route: 065

REACTIONS (3)
  - Septic shock [Recovering/Resolving]
  - Necrosis [Recovering/Resolving]
  - Infection [Recovering/Resolving]
